FAERS Safety Report 9057504 (Version 1)
Quarter: 2013Q1

REPORT INFORMATION
  Report Type: Spontaneous
  Country: US (occurrence: None)
  Receive Date: 20130204
  Receipt Date: 20130204
  Transmission Date: 20140127
  Serious: Yes (Disabling)
  Sender: FDA-Public Use
  Company Number: None

PATIENT
  Age: 22 Year
  Sex: Male
  Weight: 81.65 kg

DRUGS (1)
  1. PSEUDOEPHEDRINE [Suspect]
     Indication: MIDDLE EAR EFFUSION
     Dates: start: 20120901, end: 20121001

REACTIONS (1)
  - Tinnitus [None]
